FAERS Safety Report 9306025 (Version 1)
Quarter: 2013Q2

REPORT INFORMATION
  Report Type: Spontaneous
  Country: US (occurrence: None)
  Receive Date: 20130522
  Receipt Date: 20130522
  Transmission Date: 20140414
  Serious: No
  Sender: FDA-Public Use
  Company Number: None

PATIENT
  Age: 77 Year
  Sex: Male
  Weight: 78.02 kg

DRUGS (1)
  1. TESTIM [Suspect]
     Indication: BLOOD TESTOSTERONE DECREASED
     Dosage: ONE TUBE OF 50 MG ONCE A DAY TRANSDERMAL
     Route: 062
     Dates: start: 20130504, end: 20130520

REACTIONS (4)
  - Application site exfoliation [None]
  - Application site erythema [None]
  - Application site irritation [None]
  - Product physical issue [None]
